FAERS Safety Report 6270326-8 (Version None)
Quarter: 2009Q3

REPORT INFORMATION
  Report Type: 
  Country: None (occurrence: None)
  Receive Date: 20090716
  Receipt Date: 20090711
  Transmission Date: 20100115
  Serious: Yes (Life-Threatening, Hospitalization)
  Sender: FDA-Public Use
  Company Number: A0795342A

PATIENT
  Sex: Male
  Weight: 90.9 kg

DRUGS (6)
  1. ADVAIR HFA [Suspect]
     Indication: ASTHMA
     Route: 065
     Dates: start: 20090127, end: 20090201
  2. ALBUTEROL [Suspect]
     Indication: DRUG USE FOR UNKNOWN INDICATION
     Route: 055
  3. NAPROXEN SODIUM [Concomitant]
     Indication: INFLAMMATION
     Dosage: 550MG UNKNOWN
     Route: 048
  4. ATACAND [Concomitant]
     Indication: HYPERTENSION
     Dosage: 16MG UNKNOWN
     Route: 048
  5. PULMICORT-100 [Concomitant]
     Indication: ASTHMA
  6. ALBUTEROL [Concomitant]
     Indication: ASTHMA

REACTIONS (1)
  - BRONCHOSPASM [None]
